FAERS Safety Report 6907915-0 (Version None)
Quarter: 2010Q3

REPORT INFORMATION
  Report Type: 
  Country: None (occurrence: None)
  Receive Date: 20100805
  Receipt Date: 20100727
  Transmission Date: 20110219
  Serious: No
  Sender: FDA-Public Use
  Company Number: PHHY2010JP35758

PATIENT
  Sex: Male
  Weight: 10 kg

DRUGS (8)
  1. TEGRETOL [Suspect]
     Dosage: 45 MG
     Route: 048
     Dates: start: 20100309, end: 20100309
  2. TEGRETOL [Suspect]
     Dosage: 50 MG, DAILY (3 DOSES PER DAY)
     Route: 048
     Dates: start: 20100512, end: 20100518
  3. TEGRETOL [Suspect]
     Dosage: 80 MG DAILY (IN THREE DOSES PER DAY)
     Route: 048
     Dates: start: 20100519, end: 20100523
  4. TEGRETOL [Suspect]
     Dosage: 100 MG DAILY (IN THREE DOSES PER DAY)
     Route: 048
     Dates: start: 20100524
  5. EXCEGRAN [Concomitant]
     Indication: EPILEPSY
     Dosage: UNK
     Route: 048
     Dates: start: 20100406
  6. EXCEGRAN [Concomitant]
     Dosage: 100 MG DAILY
     Route: 048
     Dates: end: 20100531
  7. MYSTAN [Concomitant]
     Indication: EPILEPSY
     Dosage: 10 MG DAILY
     Route: 048
     Dates: start: 20100422
  8. PHENOBARBITAL TAB [Concomitant]
     Indication: CONVULSION
     Dosage: UNK
     Route: 048
     Dates: start: 20100310, end: 20100418

REACTIONS (1)
  - BLOOD CREATINE PHOSPHOKINASE INCREASED [None]
